FAERS Safety Report 18458620 (Version 1)
Quarter: 2020Q4

REPORT INFORMATION
  Report Type: Spontaneous
  Country: IT (occurrence: IT)
  Receive Date: 20201103
  Receipt Date: 20201103
  Transmission Date: 20210114
  Serious: Yes (Other)
  Sender: FDA-Public Use
  Company Number: IT-MYLANLABS-2020M1090852

PATIENT
  Age: 59 Year
  Sex: Male

DRUGS (5)
  1. IRINOTECAN [Suspect]
     Active Substance: IRINOTECAN
     Indication: COLORECTAL ADENOCARCINOMA
     Dosage: 165 MILLIGRAM/SQ. METER, Q2W (DAY 1)
     Route: 042
  2. OXALIPLATIN. [Suspect]
     Active Substance: OXALIPLATIN
     Indication: COLORECTAL ADENOCARCINOMA
     Dosage: 85 MILLIGRAM/SQ. METER (DAY 1)
     Route: 042
  3. FLUOROURACIL. [Suspect]
     Active Substance: FLUOROURACIL
     Indication: COLORECTAL ADENOCARCINOMA
     Dosage: 400 MG/M2 INTRAVENOUS BOLUS + 2400 TO 3200 MG/M2 INTRAVENOUS INFUSION, OVER 46 HOURS, DAY 1
     Route: 042
  4. FOLINIC ACID [Suspect]
     Active Substance: LEUCOVORIN
     Indication: COLORECTAL ADENOCARCINOMA
     Dosage: 200 MILLIGRAM/SQ. METER
     Route: 042
  5. BEVACIZUMAB. [Suspect]
     Active Substance: BEVACIZUMAB
     Indication: COLORECTAL ADENOCARCINOMA
     Dosage: 5 MILLIGRAM/KILOGRAM, Q2W
     Route: 042

REACTIONS (2)
  - Neutropenia [Unknown]
  - Paraesthesia [Unknown]
